APPROVED DRUG PRODUCT: THIORIDAZINE HYDROCHLORIDE
Active Ingredient: THIORIDAZINE HYDROCHLORIDE
Strength: 30MG/ML
Dosage Form/Route: CONCENTRATE;ORAL
Application: A088307 | Product #001
Applicant: SANDOZ INC
Approved: Nov 23, 1983 | RLD: No | RS: No | Type: DISCN